FAERS Safety Report 4655189-6 (Version None)
Quarter: 2005Q2

REPORT INFORMATION
  Report Type: 
  Country: None (occurrence: None)
  Receive Date: 20050506
  Receipt Date: 20050503
  Transmission Date: 20051028
  Serious: Yes (Other)
  Sender: FDA-Public Use
  Company Number: AR-GLAXOSMITHKLINE-A0557217A

PATIENT
  Age: 63 Year
  Sex: Female

DRUGS (1)
  1. AVANDIA [Suspect]
     Indication: OBESITY
     Dosage: 4MG PER DAY
     Route: 048
     Dates: start: 20041001

REACTIONS (2)
  - ALOPECIA [None]
  - HYPOTHYROIDISM [None]
